FAERS Safety Report 8995743 (Version 3)
Quarter: 2013Q1

REPORT INFORMATION
  Report Type: Spontaneous
  Country: JP (occurrence: JP)
  Receive Date: 20130103
  Receipt Date: 20130130
  Transmission Date: 20140127
  Serious: Yes (Hospitalization, Disabling, Other)
  Sender: FDA-Public Use
  Company Number: JP-TEVA-360992USA

PATIENT
  Age: 59 Year
  Sex: Female
  Weight: 42 kg

DRUGS (11)
  1. TREANDA [Suspect]
     Indication: MANTLE CELL LYMPHOMA
     Dosage: CYCLICAL
     Route: 042
     Dates: start: 20110531, end: 20110601
  2. TREANDA [Suspect]
     Dosage: REGIMEN #2
     Route: 042
     Dates: start: 20110628, end: 20110629
  3. TREANDA [Suspect]
     Dosage: REGIMEN #3
     Route: 042
     Dates: start: 20110725, end: 20110725
  4. TREANDA [Suspect]
     Dosage: REGIMEN #4
     Route: 042
     Dates: start: 20110912, end: 20110913
  5. TREANDA [Suspect]
     Dosage: REGIMEN #5
     Route: 042
     Dates: start: 20111003, end: 20111004
  6. VANCOMYCIN HYDROCHLORIDE [Concomitant]
     Dates: start: 20111015, end: 20111025
  7. RITUXIMAB [Concomitant]
     Indication: MANTLE CELL LYMPHOMA
     Dosage: CYCLICAL
     Dates: start: 20110530, end: 20111003
  8. PREDNISOLONE [Concomitant]
     Indication: MANTLE CELL LYMPHOMA
     Dosage: PER DAY
     Dates: start: 20110825, end: 20120112
  9. MEROPENEM [Concomitant]
     Indication: PNEUMONIA
     Dosage: PER DAY
     Dates: start: 20111013, end: 20111104
  10. GANCICLOVIR [Concomitant]
     Indication: CYTOMEGALOVIRUS INFECTION
     Dosage: PER DAY
     Dates: start: 20111028, end: 20121110
  11. RANITIDINE HYDROCHLORIDE [Concomitant]

REACTIONS (6)
  - Cytomegalovirus chorioretinitis [Recovering/Resolving]
  - CD4 lymphocytes decreased [Recovering/Resolving]
  - Haematuria [Recovering/Resolving]
  - Abdominal pain [Recovering/Resolving]
  - Decreased appetite [Recovering/Resolving]
  - Pneumonia [Unknown]
